FAERS Safety Report 6558231-0 (Version None)
Quarter: 2010Q1

REPORT INFORMATION
  Report Type: 
  Country: None (occurrence: None)
  Receive Date: 20100127
  Receipt Date: 20100127
  Transmission Date: 20100710
  Serious: Yes (Hospitalization)
  Sender: FDA-Public Use
  Company Number: None

PATIENT
  Age: 78 Year
  Sex: Male
  Weight: 81 kg

DRUGS (23)
  1. DILANTIN [Suspect]
     Indication: CONVULSION
     Dosage: 100MG X 5 CAPS A DAY PO, CHRONIC
     Route: 048
  2. MAALOX [Concomitant]
  3. ASPIRIN [Concomitant]
  4. LAMOTIL [Concomitant]
  5. CALCIUM [Concomitant]
  6. PLAVIX [Concomitant]
  7. COLACE [Concomitant]
  8. VIT D [Concomitant]
  9. TRILIPIX [Concomitant]
  10. FINASTERIDE [Concomitant]
  11. FLONASE [Concomitant]
  12. MUCINEX [Concomitant]
  13. NOVOLOG [Concomitant]
  14. LACTAMIL [Concomitant]
  15. LEVAQUIN [Concomitant]
  16. ALAVENT [Concomitant]
  17. METHOCORBAMOL [Concomitant]
  18. CENTRUM SILVER [Concomitant]
  19. NITROGLYCERIN [Concomitant]
  20. GELMAX [Concomitant]
  21. OXYBUTYNIN [Concomitant]
  22. ACTOS [Concomitant]
  23. ZOLOFT [Concomitant]

REACTIONS (6)
  - ANTICONVULSANT DRUG LEVEL INCREASED [None]
  - ASTHENIA [None]
  - DEHYDRATION [None]
  - DRUG INTERACTION [None]
  - RENAL FAILURE ACUTE [None]
  - RENAL FAILURE CHRONIC [None]
